FAERS Safety Report 7545479-1 (Version None)
Quarter: 2011Q2

REPORT INFORMATION
  Report Type: 
  Country: None (occurrence: None)
  Receive Date: 20110614
  Receipt Date: 20110524
  Transmission Date: 20111010
  Serious: Yes (Other)
  Sender: FDA-Public Use
  Company Number: US-BAYER-201034330NA

PATIENT
  Age: 22 Year
  Sex: Female
  Weight: 70.295 kg

DRUGS (6)
  1. YAZ [Suspect]
     Indication: ACNE
     Dosage: UNK
     Dates: start: 20070801, end: 20090901
  2. DUAC [Concomitant]
  3. IMITREX [Concomitant]
     Dosage: 100 MG, UNK
  4. PROTONIX [Concomitant]
  5. AZITHROMYCIN [Concomitant]
     Dosage: 250 MG, UNK
  6. DIFFERIN [Concomitant]

REACTIONS (3)
  - BILIARY COLIC [None]
  - PAIN [None]
  - BILIARY DYSKINESIA [None]
